FAERS Safety Report 7594341-7 (Version None)
Quarter: 2011Q3

REPORT INFORMATION
  Report Type: 
  Country: None (occurrence: None)
  Receive Date: 20110707
  Receipt Date: 20110629
  Transmission Date: 20111222
  Serious: Yes (Hospitalization)
  Sender: FDA-Public Use
  Company Number: SE-AMGEN-SWESP2011033647

PATIENT
  Age: 67 Year
  Sex: Female

DRUGS (2)
  1. ENBREL [Suspect]
     Indication: RHEUMATOID ARTHRITIS
     Dosage: 50 MG, WEEKLY
     Route: 058
     Dates: start: 20041112, end: 20071218
  2. METHOTREXATE [Concomitant]
     Dosage: 12.5 MG, UNK

REACTIONS (4)
  - BRONCHITIS [None]
  - HYPOXIA [None]
  - SEPSIS [None]
  - PNEUMONIA BACTERIAL [None]
